FAERS Safety Report 9380175 (Version 1)
Quarter: 2013Q3

REPORT INFORMATION
  Report Type: Spontaneous
  Country: US (occurrence: None)
  Receive Date: 20130701
  Receipt Date: 20130701
  Transmission Date: 20140515
  Serious: Yes (Life-Threatening, Hospitalization)
  Sender: FDA-Public Use
  Company Number: None

PATIENT
  Age: 28 Year
  Sex: Female
  Weight: 61.2 kg

DRUGS (1)
  1. ONDANSETRON [Suspect]
     Route: 042
     Dates: start: 20130617, end: 20130617

REACTIONS (3)
  - Nausea [None]
  - Hypotension [None]
  - Anaphylactic reaction [None]
